FAERS Safety Report 4336524-5 (Version None)
Quarter: 2004Q2

REPORT INFORMATION
  Report Type: 
  Country: None (occurrence: None)
  Receive Date: 20040408
  Receipt Date: 20040408
  Transmission Date: 20050107
  Serious: Yes (Death, Hospitalization)
  Sender: FDA-Public Use
  Company Number: None

PATIENT
  Age: 57 Year
  Sex: Male
  Weight: 69 kg

DRUGS (15)
  1. GEMZAR [Suspect]
     Indication: NON-SMALL CELL LUNG CANCER
     Dosage: 1800 MG/PER INFUSION
     Dates: start: 20031212, end: 20040130
  2. CARBOPLATIN [Suspect]
     Indication: NON-SMALL CELL LUNG CANCER
     Dosage: 525 MG/PER INFUSION
     Dates: start: 20031212, end: 20040123
  3. VINORELBINE TARTRATE [Suspect]
     Indication: NON-SMALL CELL LUNG CANCER
     Dosage: 25 MG/M2
  4. MITOMYCIN [Suspect]
     Indication: NON-SMALL CELL LUNG CANCER
     Dosage: 8 MG/M2
  5. NEXIUM [Concomitant]
  6. LORAZEPAM [Concomitant]
  7. LEVOTHYROXINE SODIUM [Concomitant]
  8. DIGITOXIN TAB [Concomitant]
  9. BISOPROLOL FUMARATE [Concomitant]
  10. DEXAMETHASONE [Concomitant]
  11. THEOPHYLLINE [Concomitant]
  12. BAYMYCARD (NISOLDIPINE) [Concomitant]
  13. COAPROVEL [Concomitant]
  14. UNACID PD ORAL (SULTAMICILLIN TOSILATE) [Concomitant]
  15. RADIATION THERAPY [Concomitant]

REACTIONS (22)
  - ABDOMINAL PAIN UPPER [None]
  - ALANINE AMINOTRANSFERASE INCREASED [None]
  - ANAEMIA [None]
  - ASPARTATE AMINOTRANSFERASE INCREASED [None]
  - BLOOD LACTATE DEHYDROGENASE INCREASED [None]
  - C-REACTIVE PROTEIN INCREASED [None]
  - DYSPNOEA [None]
  - GAMMA-GLUTAMYLTRANSFERASE INCREASED [None]
  - GASTRITIS [None]
  - HAEMOGLOBIN DECREASED [None]
  - INFLAMMATION [None]
  - LIVER FUNCTION TEST ABNORMAL [None]
  - METASTASES TO LIVER [None]
  - NAUSEA [None]
  - NEOPLASM PROGRESSION [None]
  - OESOPHAGEAL CANDIDIASIS [None]
  - PAIN [None]
  - RESPIRATORY TRACT INFECTION [None]
  - RETICULOCYTE COUNT INCREASED [None]
  - SEPSIS [None]
  - SERUM FERRITIN INCREASED [None]
  - SUPRAVENTRICULAR TACHYCARDIA [None]
